FAERS Safety Report 6264706-4 (Version None)
Quarter: 2009Q3

REPORT INFORMATION
  Report Type: 
  Country: None (occurrence: None)
  Receive Date: 20090710
  Receipt Date: 20090601
  Transmission Date: 20100115
  Serious: Yes (Other)
  Sender: FDA-Public Use
  Company Number: US-PFIZER INC-2009221607

PATIENT
  Sex: Female
  Weight: 108.84 kg

DRUGS (12)
  1. LYRICA [Suspect]
     Indication: FIBROMYALGIA
     Dosage: 150 MG, 2X/DAY
     Dates: start: 20040101
  2. LASIX [Concomitant]
     Indication: HYPERTENSION
     Dosage: UNK
  3. CLONIDINE [Concomitant]
     Dosage: 0.2 MG, 2X/DAY
  4. NORVASC [Concomitant]
     Dosage: 10 MG, 1X/DAY
  5. ATENOLOL [Concomitant]
     Dosage: 25 MG, 1X/DAY
  6. LISINOPRIL [Concomitant]
     Dosage: 20 MG, 1X/DAY
  7. CYMBALTA [Concomitant]
     Indication: FIBROMYALGIA
     Dosage: UNK
  8. XANAX [Concomitant]
     Indication: ANXIETY
     Dosage: UNK
  9. XANAX [Concomitant]
     Indication: PANIC ATTACK
  10. REMERON [Concomitant]
     Indication: INSOMNIA
     Dosage: 15 MG, 1X/DAY AT NIGHT
  11. LORTAB [Concomitant]
  12. SPIRONOLACTONE [Concomitant]
     Indication: HYPERTENSION
     Dosage: UNK

REACTIONS (2)
  - SWELLING [None]
  - WEIGHT INCREASED [None]
